FAERS Safety Report 19768138 (Version 2)
Quarter: 2021Q3

REPORT INFORMATION
  Report Type: Spontaneous
  Country: US (occurrence: US)
  Receive Date: 20210827
  Receipt Date: 20210827
  Transmission Date: 20211014
  Serious: No
  Sender: FDA-Public Use
  Company Number: US-009507513-2108USA006562

PATIENT
  Age: 73 Year
  Sex: Female

DRUGS (2)
  1. KEYTRUDA [Suspect]
     Active Substance: PEMBROLIZUMAB
     Indication: UTERINE CANCER
     Dosage: UNK
  2. LENVATINIB MESYLATE [Suspect]
     Active Substance: LENVATINIB MESYLATE
     Indication: UTERINE CANCER
     Dosage: 10 MILLIGRAM, QD
     Route: 048
     Dates: start: 20210813, end: 20210815

REACTIONS (7)
  - Angiopathy [Unknown]
  - Swelling face [Unknown]
  - Ocular discomfort [Unknown]
  - Hypertension [Unknown]
  - Migraine with aura [Unknown]
  - Erythema [Unknown]
  - Visual impairment [Unknown]

NARRATIVE: CASE EVENT DATE: 20210814
